FAERS Safety Report 5229911-4 (Version None)
Quarter: 2007Q1

REPORT INFORMATION
  Report Type: 
  Country: None (occurrence: None)
  Receive Date: 20070206
  Receipt Date: 20060626
  Transmission Date: 20070707
  Serious: Yes (Disabling)
  Sender: FDA-Public Use
  Company Number: US-GLAXOSMITHKLINE-A0610337A

PATIENT
  Age: 61 Year
  Sex: Male

DRUGS (4)
  1. PAXIL [Suspect]
     Indication: DEPRESSION
     Route: 048
     Dates: start: 20040101
  2. VALPROIC ACID [Concomitant]
  3. LITHIUM CARBONATE [Concomitant]
  4. COENZYME Q10 [Concomitant]

REACTIONS (2)
  - DIARRHOEA [None]
  - LETHARGY [None]
